FAERS Safety Report 4521510-2 (Version None)
Quarter: 2004Q4

REPORT INFORMATION
  Report Type: 
  Country: None (occurrence: None)
  Receive Date: 20041025
  Receipt Date: 20031120
  Transmission Date: 20050328
  Serious: Yes (Other)
  Sender: FDA-Public Use
  Company Number: HQWYE248224NOV03

PATIENT
  Age: 50 Year
  Sex: Female
  Weight: 68.1 kg

DRUGS (1)
  1. PREMARIN [Suspect]
     Indication: HOT FLUSH
     Dosage: 1.25 MG DAILY, ORAL
     Route: 048
     Dates: start: 20031104

REACTIONS (3)
  - HERPES ZOSTER [None]
  - HYPERTENSION [None]
  - NERVOUSNESS [None]
